FAERS Safety Report 8617968-X (Version None)
Quarter: 2012Q3

REPORT INFORMATION
  Report Type: 
  Country: None (occurrence: None)
  Receive Date: 20120824
  Receipt Date: 20120124
  Transmission Date: 20120928
  Serious: No
  Sender: FDA-Public Use
  Company Number: US-ASTRAZENECA-2012SE04864

PATIENT
  Age: 63 Year
  Sex: Male
  Weight: 72.6 kg

DRUGS (8)
  1. LORAZEPAM [Suspect]
     Indication: SLEEP DISORDER
     Route: 065
  2. SYMBICORT [Suspect]
     Indication: ASTHMA
     Dosage: 160/4.5 MCG, TWO TIMES A DAY
     Route: 055
     Dates: start: 20110501
  3. DEPAKOTE [Suspect]
     Indication: DEPRESSION
     Route: 065
     Dates: start: 19950101
  4. SEROQUEL [Suspect]
     Indication: DEPRESSION
     Route: 048
     Dates: start: 20100101
  5. WELLBUTRIN [Concomitant]
     Indication: DEPRESSION
  6. GENERIC XANAX [Concomitant]
     Indication: TREMOR
  7. SEROQUEL [Suspect]
     Indication: SLEEP DISORDER
     Route: 048
     Dates: start: 20100101
  8. GENERIC XANAX [Concomitant]
     Indication: ANXIETY

REACTIONS (4)
  - OFF LABEL USE [None]
  - MIDDLE INSOMNIA [None]
  - BIPOLAR DISORDER [None]
  - POLLAKIURIA [None]
